FAERS Safety Report 11612234 (Version 7)
Quarter: 2017Q1

REPORT INFORMATION
  Report Type: Report from Study
  Country: BR (occurrence: BR)
  Receive Date: 20151008
  Receipt Date: 20170221
  Transmission Date: 20170428
  Serious: Yes (Other)
  Sender: FDA-Public Use
  Company Number: PHHY2015BR113931

PATIENT
  Sex: Male
  Weight: 112 kg

DRUGS (7)
  1. EXJADE [Suspect]
     Active Substance: DEFERASIROX
     Indication: MYELODYSPLASTIC SYNDROME
     Dosage: 30 MG/KG, QD (3500 MG (7 TABLETS OF 500 MG) ONCE DAILY)
     Route: 048
  2. EXJADE [Suspect]
     Active Substance: DEFERASIROX
     Dosage: 30 MG/KG, QD (7 TABLETS OF 500 MG)
     Route: 048
  3. PANTOPRAZOL [Concomitant]
     Active Substance: PANTOPRAZOLE SODIUM
     Indication: ABDOMINAL PAIN UPPER
     Dosage: 1 DF, QD
     Route: 065
  4. MYLANTA PLUS [Concomitant]
     Active Substance: ALUMINUM HYDROXIDE\DIMETHICONE\MAGNESIUM HYDROXIDE
     Indication: CHEST PAIN
  5. MYLANTA PLUS [Concomitant]
     Active Substance: ALUMINUM HYDROXIDE\DIMETHICONE\MAGNESIUM HYDROXIDE
     Indication: GASTRIC DISORDER
     Dosage: 1 OT (TABLE SPOON), QD
     Route: 048
  6. OMEPRAZOLE. [Concomitant]
     Active Substance: OMEPRAZOLE
     Indication: GASTRIC DISORDER
     Route: 065
  7. PANTOPRAZOL [Concomitant]
     Active Substance: PANTOPRAZOLE SODIUM
     Indication: CHEST PAIN

REACTIONS (25)
  - Renal pain [Not Recovered/Not Resolved]
  - Hyperphagia [Unknown]
  - Peripheral swelling [Recovering/Resolving]
  - Swelling [Unknown]
  - Tachycardia [Unknown]
  - Dyspnoea [Unknown]
  - Abdominal distension [Unknown]
  - Malaise [Unknown]
  - Abdominal pain upper [Unknown]
  - Abdominal pain lower [Unknown]
  - Chest pain [Recovered/Resolved]
  - Pain in extremity [Recovered/Resolved]
  - Diarrhoea [Recovered/Resolved]
  - Fat tissue increased [Unknown]
  - Decreased appetite [Unknown]
  - Renal disorder [Unknown]
  - Weight increased [Not Recovered/Not Resolved]
  - Nausea [Unknown]
  - Pain [Unknown]
  - Anaemia [Not Recovered/Not Resolved]
  - Serum ferritin increased [Unknown]
  - Blood iron increased [Unknown]
  - Increased appetite [Unknown]
  - Heart rate decreased [Unknown]
  - Cardiac siderosis [Unknown]
